FAERS Safety Report 18436662 (Version 4)
Quarter: 2021Q3

REPORT INFORMATION
  Report Type: Spontaneous
  Country: US (occurrence: US)
  Receive Date: 20201028
  Receipt Date: 20210809
  Transmission Date: 20211014
  Serious: No
  Sender: FDA-Public Use
  Company Number: US-AKCEA THERAPEUTICS-2020IS001378

PATIENT
  Age: 79 Year
  Sex: Male

DRUGS (3)
  1. TEGSEDI [Suspect]
     Active Substance: INOTERSEN SODIUM
     Indication: HEREDITARY NEUROPATHIC AMYLOIDOSIS
     Route: 058
  2. ISSD (INTEGRATED SYRINGE SAFETY DEVICE) [Suspect]
     Active Substance: DEVICE
  3. TEGSEDI [Suspect]
     Active Substance: INOTERSEN SODIUM
     Indication: POLYNEUROPATHY
     Route: 058

REACTIONS (16)
  - Platelet count decreased [Unknown]
  - Urine abnormality [Unknown]
  - Crystal urine present [Unknown]
  - Urinary casts present [Unknown]
  - Urinary occult blood positive [Unknown]
  - White blood cells urine positive [Unknown]
  - Urine ketone body present [Unknown]
  - Urinary sediment present [Unknown]
  - Urine leukocyte esterase positive [Unknown]
  - Urine protein/creatinine ratio abnormal [Unknown]
  - Red blood cells urine positive [Unknown]
  - Blood creatinine increased [Unknown]
  - Bacterial test positive [Unknown]
  - Pyuria [Unknown]
  - Glomerular filtration rate decreased [Not Recovered/Not Resolved]
  - Protein urine present [Unknown]

NARRATIVE: CASE EVENT DATE: 20200819
